FAERS Safety Report 14148162 (Version 1)
Quarter: 2017Q4

REPORT INFORMATION
  Report Type: Report from Study
  Country: CA (occurrence: CA)
  Receive Date: 20171101
  Receipt Date: 20171101
  Transmission Date: 20180321
  Serious: Yes (Other)
  Sender: FDA-Public Use
  Company Number: CA-UCBSA-2017031701

PATIENT
  Sex: Female

DRUGS (5)
  1. ROTIGOTINE [Suspect]
     Active Substance: ROTIGOTINE
     Dosage: 12 MG/DAY FOR 1 WEEK
  2. ROTIGOTINE [Suspect]
     Active Substance: ROTIGOTINE
     Dosage: 8 MG/DAY FOR REMAINDER OF 3 MONTH PERIOD
  3. LEVODOPA [Concomitant]
     Active Substance: LEVODOPA
     Indication: EPILEPSY
     Dosage: UNK
  4. ROTIGOTINE [Suspect]
     Active Substance: ROTIGOTINE
     Indication: PARKINSON^S DISEASE
     Dosage: 14 MG/DAY FOR 1 WEEK
  5. ROTIGOTINE [Suspect]
     Active Substance: ROTIGOTINE
     Dosage: 10 MG/DAY FOR 1 WEEK

REACTIONS (2)
  - Off label use [Unknown]
  - Surgery [Unknown]
